FAERS Safety Report 19684771 (Version 2)
Quarter: 2021Q3

REPORT INFORMATION
  Report Type: Spontaneous
  Country: CA (occurrence: CA)
  Receive Date: 20210811
  Receipt Date: 20210908
  Transmission Date: 20211014
  Serious: Yes (Hospitalization, Other)
  Sender: FDA-Public Use
  Company Number: CA-ORION CORPORATION ORION PHARMA-21_00015454

PATIENT
  Age: 61 Year
  Sex: Female
  Weight: 77 kg

DRUGS (4)
  1. INFLECTRA [Concomitant]
     Active Substance: INFLIXIMAB-DYYB
     Indication: NEUROSARCOIDOSIS
     Dosage: 400 MG Q 0, 2, 6 WEEK DOSE, THEN Q 6 WEEKS
     Route: 065
     Dates: start: 20210713
  2. PREDNISONE. [Concomitant]
     Active Substance: PREDNISONE
     Indication: NEUROSARCOIDOSIS
     Dosage: TAPERING DOSE
     Route: 065
     Dates: start: 202103
  3. HYDROMORPHONE [Concomitant]
     Active Substance: HYDROMORPHONE
     Route: 048
  4. METHOTREXATE (TRADE NAME UNKNOWN) [Suspect]
     Active Substance: METHOTREXATE
     Indication: NEUROSARCOIDOSIS
     Route: 048
     Dates: start: 202106

REACTIONS (6)
  - Diplopia [Unknown]
  - Drug ineffective for unapproved indication [Unknown]
  - Neurological symptom [Unknown]
  - Product use in unapproved indication [Unknown]
  - Loss of consciousness [Unknown]
  - Muscular weakness [Unknown]

NARRATIVE: CASE EVENT DATE: 2021
